FAERS Safety Report 13778656 (Version 3)
Quarter: 2017Q3

REPORT INFORMATION
  Report Type: Spontaneous
  Country: US (occurrence: US)
  Receive Date: 20170721
  Receipt Date: 20170919
  Transmission Date: 20171127
  Serious: Yes (Hospitalization)
  Sender: FDA-Public Use
  Company Number: US-ACTELION-A-NJ2017-156990

PATIENT
  Age: 60 Year
  Sex: Female

DRUGS (3)
  1. METOLAZONE. [Concomitant]
     Active Substance: METOLAZONE
  2. OPSUMIT [Suspect]
     Active Substance: MACITENTAN
     Indication: PULMONARY ARTERIAL HYPERTENSION
     Dosage: UNK
     Route: 048
     Dates: start: 20170613
  3. REMODULIN [Concomitant]
     Active Substance: TREPROSTINIL
     Dosage: 30 NG/KG, PER MIN

REACTIONS (2)
  - Weight increased [Recovered/Resolved]
  - Fluid overload [Recovered/Resolved]

NARRATIVE: CASE EVENT DATE: 20170706
